FAERS Safety Report 15402996 (Version 1)
Quarter: 2018Q3

REPORT INFORMATION
  Report Type: Spontaneous
  Country: US (occurrence: US)
  Receive Date: 20180917
  Receipt Date: 20180917
  Transmission Date: 20181010
  Serious: Yes (Disabling)
  Sender: FDA-Public Use
  Company Number: None

PATIENT
  Age: 33 Year
  Sex: Female
  Weight: 65.25 kg

DRUGS (3)
  1. DRAXIMAGE MDP?25 [Suspect]
     Active Substance: TECHNETIUM TC-99M MEDRONATE
     Indication: BONE SCAN
     Dosage: ?          OTHER FREQUENCY:ONCE;?
     Route: 042
     Dates: start: 20180625, end: 20180625
  2. ANTIHISTAMINES [Concomitant]
     Active Substance: ANTIHISTAMINES NOS
  3. IBUPROFEN. [Concomitant]
     Active Substance: IBUPROFEN

REACTIONS (11)
  - Memory impairment [None]
  - C-reactive protein increased [None]
  - Laboratory test abnormal [None]
  - Headache [None]
  - Disturbance in attention [None]
  - Fatigue [None]
  - Rash [None]
  - Arthralgia [None]
  - Angioedema [None]
  - Antinuclear antibody positive [None]
  - Emotional distress [None]

NARRATIVE: CASE EVENT DATE: 20180626
